FAERS Safety Report 17959723 (Version 1)
Quarter: 2020Q2

REPORT INFORMATION
  Report Type: Spontaneous
  Country: CH (occurrence: CH)
  Receive Date: 20200629
  Receipt Date: 20200629
  Transmission Date: 20200714
  Serious: Yes (Hospitalization, Other)
  Sender: FDA-Public Use
  Company Number: CH-JNJFOC-20200623570

PATIENT
  Age: 64 Year
  Sex: Male

DRUGS (13)
  1. CLEXANE [Concomitant]
     Active Substance: ENOXAPARIN SODIUM
     Route: 065
  2. DAFALGAN [Concomitant]
     Active Substance: ACETAMINOPHEN
     Dosage: AS NECESSARY
     Route: 065
  3. ZYPREXA [Suspect]
     Active Substance: OLANZAPINE
     Indication: PRODUCT USED FOR UNKNOWN INDICATION
     Route: 048
     Dates: start: 20200527, end: 20200527
  4. PURSANA [Concomitant]
     Active Substance: FIG FRUIT OIL\SORBITOL
     Route: 065
  5. HALDOL [Suspect]
     Active Substance: HALOPERIDOL
     Dosage: MAX 2X/D. ; AS NECESSARY
     Route: 048
     Dates: start: 20200520, end: 20200526
  6. FLUOXETINE [Suspect]
     Active Substance: FLUOXETINE HYDROCHLORIDE
     Indication: PRODUCT USED FOR UNKNOWN INDICATION
     Route: 048
     Dates: start: 20200528
  7. KAMILLOFLUID [Concomitant]
     Route: 065
  8. LAXOBERON [Concomitant]
     Active Substance: SODIUM PICOSULFATE
     Dosage: AS NECESSARY
     Route: 065
  9. HALDOL [Suspect]
     Active Substance: HALOPERIDOL
     Indication: PRODUCT USED FOR UNKNOWN INDICATION
     Route: 048
     Dates: start: 20200520, end: 20200525
  10. TEMESTA EXPIDET [Concomitant]
     Active Substance: LORAZEPAM
     Route: 065
     Dates: start: 20200520
  11. VENLAFAXINE [Suspect]
     Active Substance: VENLAFAXINE HYDROCHLORIDE
     Indication: PRODUCT USED FOR UNKNOWN INDICATION
     Route: 048
     Dates: start: 20200511, end: 20200518
  12. LEXOTANIL [Concomitant]
     Active Substance: BROMAZEPAM
     Dosage: AS NECESSARY
     Route: 065
     Dates: end: 20200518
  13. FOLIC ACID. [Concomitant]
     Active Substance: FOLIC ACID
     Route: 065

REACTIONS (2)
  - Serotonin syndrome [Recovered/Resolved]
  - Generalised onset non-motor seizure [Recovered/Resolved]

NARRATIVE: CASE EVENT DATE: 20200518
